FAERS Safety Report 8622474-2 (Version None)
Quarter: 2012Q3

REPORT INFORMATION
  Report Type: 
  Country: None (occurrence: None)
  Receive Date: 20120827
  Receipt Date: 20120820
  Transmission Date: 20120928
  Serious: No
  Sender: FDA-Public Use
  Company Number: US-009507513-1208USA009133

PATIENT

DRUGS (1)
  1. DULERA [Suspect]
     Indication: CHRONIC OBSTRUCTIVE PULMONARY DISEASE
     Dosage: 1 DF, BID
     Route: 048
     Dates: start: 20110201

REACTIONS (2)
  - THERAPEUTIC RESPONSE DECREASED [None]
  - PRODUCT QUALITY ISSUE [None]
